FAERS Safety Report 25029103 (Version 1)
Quarter: 2025Q1

REPORT INFORMATION
  Report Type: Spontaneous
  Country: US (occurrence: US)
  Receive Date: 20250303
  Receipt Date: 20250303
  Transmission Date: 20250409
  Serious: No
  Sender: BRISTOL-MYERS SQUIBB COMPANY
  Company Number: US-BRISTOL-MYERS SQUIBB COMPANY-2025-030026

PATIENT
  Age: 80 Year
  Sex: Male
  Weight: 100.06 kg

DRUGS (1)
  1. REVLIMID [Suspect]
     Active Substance: LENALIDOMIDE
     Indication: Diffuse large B-cell lymphoma
     Route: 048

REACTIONS (7)
  - Anaemia [Unknown]
  - Haemorrhage [Unknown]
  - Urinary tract infection [Unknown]
  - Fatigue [Unknown]
  - Memory impairment [Unknown]
  - Off label use [Unknown]
  - Asthenia [Unknown]
